FAERS Safety Report 9355840 (Version 1)
Quarter: 2013Q2

REPORT INFORMATION
  Report Type: Report from Study
  Country: US (occurrence: US)
  Receive Date: 20130619
  Receipt Date: 20130619
  Transmission Date: 20140414
  Serious: Yes (Other)
  Sender: FDA-Public Use
  Company Number: US-EISAI INC-E7272-00164-CLI-US

PATIENT
  Age: 81 Year
  Sex: Female

DRUGS (5)
  1. ONTAK [Suspect]
     Indication: MYCOSIS FUNGOIDES STAGE I
     Route: 041
  2. TARGRETIN CAPSULES [Suspect]
     Indication: MYCOSIS FUNGOIDES STAGE I
     Route: 048
  3. ACETAMINOPHEN [Concomitant]
     Indication: PREMEDICATION
     Route: 048
  4. DEXAMETHASONE [Concomitant]
     Indication: PREMEDICATION
     Route: 041
  5. DIPHENHYDRAMINE [Concomitant]
     Indication: PREMEDICATION
     Dosage: 25MG - 50MG
     Route: 048

REACTIONS (1)
  - Lymphopenia [Recovered/Resolved]
